FAERS Safety Report 7069616-0 (Version None)
Quarter: 2010Q4

REPORT INFORMATION
  Report Type: 
  Country: None (occurrence: None)
  Receive Date: 20101028
  Receipt Date: 20100412
  Transmission Date: 20110411
  Serious: No
  Sender: FDA-Public Use
  Company Number: US-WYE-H14565210

PATIENT
  Sex: Female
  Weight: 77.18 kg

DRUGS (6)
  1. EFFEXOR [Suspect]
     Route: 048
     Dates: start: 20090101, end: 20090101
  2. EFFEXOR [Suspect]
     Route: 048
     Dates: start: 20090101
  3. TRICOR [Concomitant]
  4. CALCIUM [Concomitant]
  5. LEVOTHYROXINE [Concomitant]
  6. AMLODIPINE [Concomitant]

REACTIONS (6)
  - CARPAL TUNNEL SYNDROME [None]
  - DRUG WITHDRAWAL SYNDROME [None]
  - HYPOAESTHESIA [None]
  - PAIN IN EXTREMITY [None]
  - TREMOR [None]
  - UNEVALUABLE EVENT [None]
